FAERS Safety Report 5192596-X (Version None)
Quarter: 2006Q4

REPORT INFORMATION
  Report Type: 
  Country: None (occurrence: None)
  Receive Date: 20061220
  Receipt Date: 20061120
  Transmission Date: 20070319
  Serious: Yes (Other)
  Sender: FDA-Public Use
  Company Number: 2006144789

PATIENT
  Age: 45 Year
  Sex: Male
  Weight: 86.1834 kg

DRUGS (4)
  1. CELEBREX [Suspect]
     Indication: ARTHRITIS
     Dosage: 400 MG (200 MG, 2 IN 1D), ORAL
     Route: 048
     Dates: start: 20020201, end: 20030411
  2. CELEBREX [Suspect]
     Indication: BACK INJURY
     Dosage: 400 MG (200 MG, 2 IN 1D), ORAL
     Route: 048
     Dates: start: 20020201, end: 20030411
  3. ZANAFLEX [Concomitant]
  4. PREVACID [Concomitant]

REACTIONS (6)
  - ACUTE SINUSITIS [None]
  - ANAPHYLACTOID REACTION [None]
  - BRONCHOSPASM [None]
  - DRUG HYPERSENSITIVITY [None]
  - LARYNGEAL OEDEMA [None]
  - THORACIC OUTLET SYNDROME [None]
